FAERS Safety Report 20713128 (Version 5)
Quarter: 2022Q2

REPORT INFORMATION
  Report Type: Report from Study
  Country: IL (occurrence: IL)
  Receive Date: 20220415
  Receipt Date: 20220526
  Transmission Date: 20220721
  Serious: Yes (Hospitalization, Other)
  Sender: FDA-Public Use
  Company Number: IL-BRISTOL-MYERS SQUIBB COMPANY-2022-018493

PATIENT
  Age: 71 Year
  Sex: Male
  Weight: 67 kg

DRUGS (17)
  1. CABOZANTINIB [Suspect]
     Active Substance: CABOZANTINIB
     Indication: Metastatic renal cell carcinoma
     Dosage: 40 MG
     Route: 048
     Dates: start: 20181220, end: 20190101
  2. NIVOLUMAB [Suspect]
     Active Substance: NIVOLUMAB
     Indication: Metastatic renal cell carcinoma
     Dosage: 240 MG
     Route: 042
     Dates: start: 20181220, end: 20181220
  3. NIVOLUMAB [Suspect]
     Active Substance: NIVOLUMAB
     Dosage: 240 MG
     Route: 042
     Dates: start: 20201210, end: 20201210
  4. TEVACUTAN [Concomitant]
     Indication: Product used for unknown indication
     Dosage: UNK
     Route: 061
     Dates: start: 20210505
  5. TEVACUTAN [Concomitant]
     Indication: Adverse event
  6. BETAMETHASONE [Concomitant]
     Active Substance: BETAMETHASONE
     Indication: Product used for unknown indication
     Dosage: ONGOING
     Route: 061
     Dates: start: 20210505
  7. BETAMETHASONE [Concomitant]
     Active Substance: BETAMETHASONE
     Indication: Adverse event
  8. METAMIZOLE [Concomitant]
     Active Substance: METAMIZOLE
     Indication: Product used for unknown indication
     Dosage: 1 DOSAGE FORM=30-UNIT NOS
     Route: 048
     Dates: start: 20210615, end: 20210722
  9. METAMIZOLE [Concomitant]
     Active Substance: METAMIZOLE
     Indication: Adverse event
  10. INFLUENZA VIRUS VACCINE [Concomitant]
     Active Substance: INFLUENZA VIRUS VACCINE
     Indication: Prophylaxis
     Dosage: UNK
     Route: 058
     Dates: start: 20191212
  11. PNEUMOVAX 23 [Concomitant]
     Active Substance: PNEUMOCOCCAL VACCINE, POLYVALENT 23
     Indication: Prophylaxis
     Dosage: UNK
     Route: 058
     Dates: start: 20191212
  12. PERCOCET [Concomitant]
     Active Substance: ACETAMINOPHEN\OXYCODONE HYDROCHLORIDE
     Indication: Product used for unknown indication
     Dosage: ONGOING
     Route: 048
     Dates: start: 20181125
  13. MICONAZOLE NITRATE [Concomitant]
     Active Substance: MICONAZOLE NITRATE
     Indication: Product used for unknown indication
     Dosage: UNK
     Route: 048
     Dates: start: 20200615
  14. CHLORHEXIDINE GLUCONATE [Concomitant]
     Active Substance: CHLORHEXIDINE GLUCONATE
     Indication: Product used for unknown indication
     Dosage: ONGOING
     Route: 062
     Dates: start: 20200914
  15. INFLUENZA A+B [Concomitant]
     Indication: Prophylaxis
     Dosage: UNK
     Route: 058
     Dates: start: 20201129
  16. PROBIOTICS NOS [Concomitant]
     Active Substance: PROBIOTICS NOS
     Indication: Prophylaxis
     Dosage: UNK
     Route: 050
     Dates: start: 20201001
  17. GENTAMICIN [Concomitant]
     Active Substance: GENTAMICIN
     Indication: Adverse event
     Dosage: UNK
     Route: 061
     Dates: start: 20210617

REACTIONS (2)
  - Condition aggravated [Recovered/Resolved]
  - Osteonecrosis of jaw [Recovered/Resolved]

NARRATIVE: CASE EVENT DATE: 20210701
